FAERS Safety Report 14865495 (Version 4)
Quarter: 2018Q2

REPORT INFORMATION
  Report Type: Report from Study
  Country: US (occurrence: US)
  Receive Date: 20180508
  Receipt Date: 20180604
  Transmission Date: 20180711
  Serious: Yes (Life-Threatening)
  Sender: FDA-Public Use
  Company Number: US-ALEXION PHARMACEUTICALS INC.-A201805063

PATIENT
  Sex: Male

DRUGS (2)
  1. STRENSIQ [Suspect]
     Active Substance: ASFOTASE ALFA
     Indication: HYPOPHOSPHATASIA
     Dosage: UNK
     Route: 058
     Dates: end: 20180328
  2. STRENSIQ [Suspect]
     Active Substance: ASFOTASE ALFA
     Dosage: UNK
     Route: 058
     Dates: end: 20180328

REACTIONS (15)
  - Hyperhidrosis [Unknown]
  - Nausea [Unknown]
  - Drug hypersensitivity [Unknown]
  - Throat tightness [Unknown]
  - Oral pruritus [Unknown]
  - Paraesthesia [Unknown]
  - Swollen tongue [Unknown]
  - Hypersensitivity [Unknown]
  - Headache [Unknown]
  - Paraesthesia oral [Unknown]
  - Pharyngeal oedema [Unknown]
  - Injection site erythema [Unknown]
  - Pruritus generalised [Unknown]
  - Eye pruritus [Unknown]
  - Hot flush [Unknown]
